FAERS Safety Report 22527335 (Version 1)
Quarter: 2023Q2

REPORT INFORMATION
  Report Type: Other
  Country: CN (occurrence: None)
  Receive Date: 20230606
  Receipt Date: 20230606
  Transmission Date: 20230722
  Serious: Yes (Hospitalization)
  Sender: FDA-Public Use
  Company Number: CN-ROCHE-3361447

PATIENT

DRUGS (7)
  1. ATEZOLIZUMAB [Suspect]
     Active Substance: ATEZOLIZUMAB
     Indication: Hepatocellular carcinoma
     Route: 041
  2. BEVACIZUMAB [Suspect]
     Active Substance: BEVACIZUMAB
     Indication: Hepatocellular carcinoma
     Route: 041
  3. OXALIPLATIN [Suspect]
     Active Substance: OXALIPLATIN
     Indication: Hepatocellular carcinoma
     Dosage: 2 HOURS
     Route: 013
  4. LEUCOVORIN [Suspect]
     Active Substance: LEUCOVORIN
     Indication: Hepatocellular carcinoma
     Dosage: 1 HOUR
     Route: 042
  5. FLUOROURACIL [Suspect]
     Active Substance: FLUOROURACIL
     Indication: Hepatocellular carcinoma
     Dosage: 1 HOUR
     Route: 013
  6. FLUOROURACIL [Suspect]
     Active Substance: FLUOROURACIL
     Dosage: 23 HOURS
     Route: 013
  7. LIPIODOL [Suspect]
     Active Substance: ETHIODIZED OIL
     Indication: Hepatocellular carcinoma
     Route: 013

REACTIONS (20)
  - Blood bilirubin increased [Unknown]
  - Gastrointestinal haemorrhage [Unknown]
  - Abdominal pain upper [Unknown]
  - Rash [Unknown]
  - Pruritus [Unknown]
  - Proteinuria [Unknown]
  - Hypothyroidism [Unknown]
  - Alopecia [Unknown]
  - Weight decreased [Unknown]
  - Hypertension [Recovering/Resolving]
  - Palmar-plantar erythrodysaesthesia syndrome [Recovering/Resolving]
  - Leukopenia [Recovering/Resolving]
  - Thrombocytopenia [Recovering/Resolving]
  - Abdominal pain [Recovered/Resolved]
  - Fatigue [Recovered/Resolved]
  - Decreased appetite [Recovered/Resolved]
  - Vomiting [Recovered/Resolved]
  - Nausea [Recovered/Resolved]
  - Diarrhoea [Recovered/Resolved]
  - Transaminases increased [Recovered/Resolved]
